FAERS Safety Report 19936713 (Version 1)
Quarter: 2021Q4

REPORT INFORMATION
  Report Type: Spontaneous
  Country: CN (occurrence: CN)
  Receive Date: 20211008
  Receipt Date: 20211008
  Transmission Date: 20220303
  Serious: Yes (Hospitalization)
  Sender: FDA-Public Use
  Company Number: CN-BAXTER-2021BAX031319

PATIENT
  Age: 48 Year
  Sex: Female
  Weight: 52 kg

DRUGS (4)
  1. CYCLOPHOSPHAMIDE [Suspect]
     Active Substance: CYCLOPHOSPHAMIDE
     Indication: Breast cancer female
     Dosage: 0.9% NS 100ML + CYCLOPHOSPHAMIDE 900MG
     Route: 041
     Dates: start: 20210902, end: 20210902
  2. SODIUM CHLORIDE [Suspect]
     Active Substance: SODIUM CHLORIDE
     Indication: Medication dilution
     Dosage: 0.9% NS 100ML + CYCLOPHOSPHAMIDE 900MG
     Route: 041
     Dates: start: 20210902, end: 20210902
  3. SODIUM CHLORIDE [Suspect]
     Active Substance: SODIUM CHLORIDE
     Dosage: 0.9% NS 100ML + EPIRUBICIN HYDROCHLORIDE 150MG
     Route: 041
     Dates: start: 20210902, end: 20210902
  4. EPIRUBICIN HYDROCHLORIDE [Suspect]
     Active Substance: EPIRUBICIN HYDROCHLORIDE
     Indication: Breast cancer female
     Dosage: 0.9% NS 100ML + EPIRUBICIN HYDROCHLORIDE 150MG
     Route: 041
     Dates: start: 20210902, end: 20210902

REACTIONS (1)
  - Myelosuppression [Recovered/Resolved]

NARRATIVE: CASE EVENT DATE: 20210908
